FAERS Safety Report 13333258 (Version 1)
Quarter: 2017Q1

REPORT INFORMATION
  Report Type: Spontaneous
  Country: DE (occurrence: DE)
  Receive Date: 20170314
  Receipt Date: 20170314
  Transmission Date: 20170428
  Serious: Yes (Other)
  Sender: FDA-Public Use
  Company Number: DE-GLAXOSMITHKLINE-DE2017GSK035261

PATIENT
  Sex: Female

DRUGS (4)
  1. VIANI [Suspect]
     Active Substance: FLUTICASONE PROPIONATE\SALMETEROL XINAFOATE
     Indication: ASTHMA
     Dosage: UNK, PRN
     Dates: start: 200904, end: 201403
  2. DUPHASTON [Concomitant]
     Active Substance: DYDROGESTERONE
     Indication: MENORRHAGIA
     Dosage: UNK
     Dates: start: 2009, end: 201307
  3. BUDECORT [Suspect]
     Active Substance: BUDESONIDE
     Indication: ASTHMA
     Dosage: UNK
     Dates: start: 200811, end: 200904
  4. UTROGESTAN [Concomitant]
     Active Substance: PROGESTERONE
     Indication: MENORRHAGIA
     Dosage: UNK
     Dates: start: 2008, end: 2009

REACTIONS (3)
  - Menorrhagia [Unknown]
  - Haemoglobin decreased [Unknown]
  - Uterine cancer [Unknown]

NARRATIVE: CASE EVENT DATE: 2009
